FAERS Safety Report 20734906 (Version 1)
Quarter: 2022Q2

REPORT INFORMATION
  Report Type: Spontaneous
  Country: US (occurrence: None)
  Receive Date: 20220420
  Receipt Date: 20220420
  Transmission Date: 20220720
  Serious: No
  Sender: FDA-Public Use
  Company Number: None

PATIENT
  Age: 51 Year
  Sex: Female
  Weight: 76.5 kg

DRUGS (3)
  1. HYDROCHLOROTHIAZIDE\TRIAMTERENE [Suspect]
     Active Substance: HYDROCHLOROTHIAZIDE\TRIAMTERENE
     Indication: Hypertension
     Dosage: OTHER QUANTITY : 1 TABLET(S);?FREQUENCY : AT BEDTIME;?
     Route: 048
     Dates: start: 20220304, end: 20220413
  2. HYDROCHLOROTHIAZIDE\TRIAMTERENE [Suspect]
     Active Substance: HYDROCHLOROTHIAZIDE\TRIAMTERENE
     Indication: Tinnitus
  3. LEVOTHYROXINE [Concomitant]
     Active Substance: LEVOTHYROXINE

REACTIONS (6)
  - Petechiae [None]
  - Manufacturing issue [None]
  - Product quality issue [None]
  - Rash [None]
  - Capillaritis [None]
  - Manufacturing materials issue [None]

NARRATIVE: CASE EVENT DATE: 20220318
